FAERS Safety Report 9291488 (Version 1)
Quarter: 2013Q2

REPORT INFORMATION
  Report Type: Report from Study
  Country: EG (occurrence: EG)
  Receive Date: 20130515
  Receipt Date: 20130515
  Transmission Date: 20140414
  Serious: Yes (Other)
  Sender: FDA-Public Use
  Company Number: EG-BAXTER-2013BAX005360

PATIENT
  Sex: Female

DRUGS (3)
  1. ENDOXAN VIAL 1G [Suspect]
     Indication: BREAST CANCER
     Route: 042
  2. FLOUROURACIL [Concomitant]
     Indication: BREAST CANCER
  3. ADRIAMYCIN [Concomitant]
     Indication: BREAST CANCER

REACTIONS (2)
  - Maternal exposure before pregnancy [Recovered/Resolved]
  - No adverse event [Recovered/Resolved]
